FAERS Safety Report 20167306 (Version 8)
Quarter: 2022Q1

REPORT INFORMATION
  Report Type: Report from Study
  Country: BE (occurrence: BE)
  Receive Date: 20211209
  Receipt Date: 20220323
  Transmission Date: 20220424
  Serious: Yes (Death)
  Sender: FDA-Public Use
  Company Number: BE-KARYOPHARM-2021KPT001505

PATIENT
  Age: 62 Year
  Sex: Male

DRUGS (11)
  1. SELINEXOR [Suspect]
     Active Substance: SELINEXOR
     Indication: Plasma cell myeloma
     Dosage: 100 MG, WEEKLY
     Route: 048
     Dates: start: 20210625, end: 20210716
  2. PANTOPRAZOLE [Concomitant]
     Active Substance: PANTOPRAZOLE
     Dosage: 20 MG, QD
  3. LITICAN [ALIZAPRIDE HYDROCHLORIDE] [Concomitant]
     Dosage: 50 MG, PRN
  4. BISOPROLOL [Concomitant]
     Active Substance: BISOPROLOL
     Dosage: 1.25 MG, QD
  5. OMIC [Concomitant]
     Dosage: 0.4 MG, QD
  6. ACYCLOVIR [Concomitant]
     Active Substance: ACYCLOVIR
     Dosage: 400 MG, BID
  7. OXYCODONE HYDROCHLORIDE [Concomitant]
     Active Substance: OXYCODONE HYDROCHLORIDE
     Dosage: 5 MG, PRN
  8. FENTANYL [Concomitant]
     Active Substance: FENTANYL
     Dosage: 25 UG/H
  9. ZOLPIDEM TARTRATE [Concomitant]
     Active Substance: ZOLPIDEM TARTRATE
     Dosage: 10 MG, PRN
  10. VELCADE [Concomitant]
     Active Substance: BORTEZOMIB
     Dosage: UNK, WEEKLY
  11. DEXAMETHASONE [Concomitant]
     Active Substance: DEXAMETHASONE

REACTIONS (2)
  - Plasma cell myeloma [Fatal]
  - Flatulence [Recovered/Resolved]

NARRATIVE: CASE EVENT DATE: 20210701
